FAERS Safety Report 5861246-9 (Version None)
Quarter: 2008Q3

REPORT INFORMATION
  Report Type: 
  Country: None (occurrence: None)
  Receive Date: 20080827
  Receipt Date: 20080331
  Transmission Date: 20090109
  Serious: No
  Sender: FDA-Public Use
  Company Number: US-ABBOTT-08P-163-0444543-00

PATIENT
  Sex: Female
  Weight: 90.346 kg

DRUGS (4)
  1. NIASPAN [Suspect]
     Indication: BLOOD CHOLESTEROL INCREASED
     Route: 048
     Dates: start: 20080324, end: 20080328
  2. NIASPAN [Suspect]
     Route: 048
     Dates: start: 20080330, end: 20080331
  3. LEVOTHYROXINE [Concomitant]
     Indication: GOITRE
     Route: 048
     Dates: start: 19700101
  4. LEVOTHYROXINE [Concomitant]
     Indication: HYPOTHYROIDISM

REACTIONS (4)
  - DYSPEPSIA [None]
  - FLATULENCE [None]
  - OEDEMA PERIPHERAL [None]
  - SWELLING FACE [None]
